FAERS Safety Report 4384171-1 (Version None)
Quarter: 2004Q2

REPORT INFORMATION
  Report Type: 
  Country: None (occurrence: None)
  Receive Date: 20040623
  Receipt Date: 20040623
  Transmission Date: 20050107
  Serious: Yes (Life-Threatening, Hospitalization)
  Sender: FDA-Public Use
  Company Number: None

PATIENT
  Sex: Male

DRUGS (2)
  1. WARFARIN SODIUM [Suspect]
     Indication: ATRIAL FIBRILLATION
     Dosage: 5 MG ONCE DAILY ORAL
     Route: 048
     Dates: start: 20040310, end: 20040411
  2. WARFARIN SODIUM [Suspect]
     Indication: THROMBOSIS PROPHYLAXIS
     Dosage: 5 MG ONCE DAILY ORAL
     Route: 048
     Dates: start: 20040310, end: 20040411

REACTIONS (1)
  - CEREBRAL HAEMORRHAGE [None]
